FAERS Safety Report 14658108 (Version 1)
Quarter: 2018Q1

REPORT INFORMATION
  Report Type: Report from Study
  Country: AU (occurrence: AU)
  Receive Date: 20180320
  Receipt Date: 20180320
  Transmission Date: 20180509
  Serious: Yes (Hospitalization)
  Sender: FDA-Public Use
  Company Number: AU-ASTRAZENECA-2018SE16203

PATIENT
  Age: 23644 Day
  Sex: Male

DRUGS (10)
  1. DAPAGLIFLOZIN. [Suspect]
     Active Substance: DAPAGLIFLOZIN
     Indication: TYPE 2 DIABETES MELLITUS
     Route: 048
     Dates: start: 20141009, end: 20141221
  2. DAPAGLIFLOZIN. [Suspect]
     Active Substance: DAPAGLIFLOZIN
     Indication: TYPE 2 DIABETES MELLITUS
     Route: 048
     Dates: start: 20150630
  3. PANADOL [Concomitant]
     Active Substance: ACETAMINOPHEN
     Indication: ANALGESIC THERAPY
     Route: 048
  4. AMITRIPTYLINE [Concomitant]
     Active Substance: AMITRIPTYLINE
     Indication: ANALGESIC THERAPY
     Route: 048
     Dates: start: 20150901
  5. CO DIOVAN [Concomitant]
     Active Substance: HYDROCHLOROTHIAZIDE\VALSARTAN
     Indication: HYPERTENSION
     Route: 048
     Dates: start: 20150506
  6. METFORMIN [Concomitant]
     Active Substance: METFORMIN HYDROCHLORIDE
     Dosage: QOD
     Route: 048
     Dates: start: 20160921
  7. DAPAGLIFLOZIN. [Suspect]
     Active Substance: DAPAGLIFLOZIN
     Indication: TYPE 2 DIABETES MELLITUS
     Route: 048
     Dates: start: 20150111, end: 20150519
  8. PROPANOLOL [Concomitant]
     Active Substance: PROPRANOLOL HYDROCHLORIDE
     Indication: MYOCARDIAL ISCHAEMIA
     Route: 048
     Dates: start: 20150801
  9. CRESTOR [Concomitant]
     Active Substance: ROSUVASTATIN CALCIUM
     Route: 048
     Dates: start: 20170330
  10. ASPRIN [Concomitant]
     Active Substance: ASPIRIN
     Indication: MYOCARDIAL ISCHAEMIA
     Route: 048

REACTIONS (1)
  - Pyrexia [Recovered/Resolved]

NARRATIVE: CASE EVENT DATE: 20171130
